FAERS Safety Report 19683794 (Version 3)
Quarter: 2021Q3

REPORT INFORMATION
  Report Type: Spontaneous
  Country: ES (occurrence: ES)
  Receive Date: 20210811
  Receipt Date: 20210922
  Transmission Date: 20211014
  Serious: No
  Sender: FDA-Public Use
  Company Number: ES-JNJFOC-20210765846

PATIENT
  Age: 80 Year
  Sex: Male

DRUGS (3)
  1. DUROGESIC MATRIX [Suspect]
     Active Substance: FENTANYL
     Dosage: STRENGTH: 75.00 MCG/HR
     Route: 062
  2. DUROGESIC MATRIX [Suspect]
     Active Substance: FENTANYL
     Indication: BONE PAIN
     Dosage: STRENGTH: 75.00 MCG/HR
     Route: 062
  3. DUROGESIC MATRIX [Suspect]
     Active Substance: FENTANYL

REACTIONS (3)
  - Product adhesion issue [Unknown]
  - Underdose [Unknown]
  - Wrong technique in product usage process [Unknown]
